FAERS Safety Report 14952627 (Version 2)
Quarter: 2018Q2

REPORT INFORMATION
  Report Type: Spontaneous
  Country: US (occurrence: US)
  Receive Date: 20180530
  Receipt Date: 20180607
  Transmission Date: 20180711
  Serious: No
  Sender: FDA-Public Use
  Company Number: US-PFIZER INC-2018220791

PATIENT
  Age: 59 Year
  Sex: Female

DRUGS (2)
  1. EUCRISA [Suspect]
     Active Substance: CRISABOROLE
     Indication: PSORIASIS
     Dosage: UNK
  2. EUCRISA [Suspect]
     Active Substance: CRISABOROLE
     Indication: PERIORAL DERMATITIS

REACTIONS (5)
  - Application site rash [Unknown]
  - Application site vesicles [Unknown]
  - Hypersensitivity [Unknown]
  - Application site pruritus [Unknown]
  - Application site pain [Unknown]
